FAERS Safety Report 7121383-8 (Version None)
Quarter: 2010Q4

REPORT INFORMATION
  Report Type: 
  Country: None (occurrence: None)
  Receive Date: 20101124
  Receipt Date: 20101115
  Transmission Date: 20110411
  Serious: Yes (Other)
  Sender: FDA-Public Use
  Company Number: FR-ELI_LILLY_AND_COMPANY-FR201011003841

PATIENT
  Age: 67 Year
  Sex: Male

DRUGS (1)
  1. CYMBALTA [Suspect]
     Indication: URINARY INCONTINENCE
     Dosage: 60 MG, DAILY (1/D)
     Route: 048
     Dates: start: 20100701, end: 20101108

REACTIONS (3)
  - ATRIOVENTRICULAR BLOCK SECOND DEGREE [None]
  - DRUG WITHDRAWAL SYNDROME [None]
  - OFF LABEL USE [None]
